FAERS Safety Report 25277021 (Version 2)
Quarter: 2025Q2

REPORT INFORMATION
  Report Type: Spontaneous
  Country: NL (occurrence: NL)
  Receive Date: 20250507
  Receipt Date: 20250513
  Transmission Date: 20250716
  Serious: Yes (Hospitalization, Other)
  Sender: DR REDDYS
  Company Number: None

PATIENT
  Age: 71 Year
  Sex: Male
  Weight: 75 kg

DRUGS (6)
  1. ABIRATERONE [Suspect]
     Active Substance: ABIRATERONE
     Indication: Prostate cancer metastatic
     Dosage: 1X DAAGS 1000MG
     Route: 048
     Dates: start: 20240601, end: 20240801
  2. ROSUVASTATIN [Suspect]
     Active Substance: ROSUVASTATIN
     Indication: Myocardial infarction
     Dosage: 1X DAAGS 1 STUK
     Route: 048
     Dates: start: 20190101, end: 20240801
  3. RIVAROXABAN [Concomitant]
     Active Substance: RIVAROXABAN
     Indication: Product used for unknown indication
     Route: 048
  4. METOPROLOL TABLET MGA  50MG (SUCCINAAT) / Brand name not specified [Concomitant]
     Indication: Product used for unknown indication
     Route: 048
  5. TRIPTORELINE PDR V INJSUSP 11,25MG / Brand name not specified [Concomitant]
     Indication: Product used for unknown indication
  6. CHLOORTALIDON TABLET 12,5MG / Brand name not specified [Concomitant]
     Indication: Product used for unknown indication
     Route: 048

REACTIONS (3)
  - Rhabdomyolysis [Recovering/Resolving]
  - Acute kidney injury [Recovering/Resolving]
  - Drug interaction [Unknown]
